FAERS Safety Report 8320873-X (Version None)
Quarter: 2012Q2

REPORT INFORMATION
  Report Type: 
  Country: None (occurrence: None)
  Receive Date: 20120430
  Receipt Date: 20120423
  Transmission Date: 20120825
  Serious: Yes (Other)
  Sender: FDA-Public Use
  Company Number: PHHY2012CA035621

PATIENT
  Sex: Male

DRUGS (2)
  1. TOBI [Suspect]
     Dosage: 1 DF, UNK
     Dates: start: 20110101
  2. PULMOZYME [Concomitant]

REACTIONS (3)
  - BRONCHOSPASM [None]
  - THROAT IRRITATION [None]
  - DYSPHONIA [None]
